FAERS Safety Report 4698800-6 (Version None)
Quarter: 2005Q2

REPORT INFORMATION
  Report Type: 
  Country: None (occurrence: None)
  Receive Date: 20050621
  Receipt Date: 20040714
  Transmission Date: 20051028
  Serious: Yes (Other)
  Sender: FDA-Public Use
  Company Number: PHEH2004US07678

PATIENT
  Age: 82 Year
  Sex: Female

DRUGS (4)
  1. EXELON [Suspect]
     Indication: DEMENTIA ALZHEIMER'S TYPE
     Dosage: 1.5MG, BID, ORAL; 3 MG, BID, ORAL
     Route: 048
     Dates: start: 20040610, end: 20040711
  2. EXELON [Suspect]
     Indication: DEMENTIA ALZHEIMER'S TYPE
     Dosage: 1.5MG, BID, ORAL; 3 MG, BID, ORAL
     Route: 048
     Dates: start: 20040712, end: 20040712
  3. IMDUR [Concomitant]
  4. NORVASC [Concomitant]

REACTIONS (4)
  - CRYING [None]
  - DEPRESSION [None]
  - PARANOIA [None]
  - THINKING ABNORMAL [None]
